FAERS Safety Report 21924442 (Version 4)
Quarter: 2023Q1

REPORT INFORMATION
  Report Type: Spontaneous
  Country: JP (occurrence: JP)
  Receive Date: 20230130
  Receipt Date: 20230316
  Transmission Date: 20230417
  Serious: Yes (Death, Hospitalization, Other)
  Sender: FDA-Public Use
  Company Number: JP-GILEAD-2023-0614064

PATIENT
  Age: 7 Decade
  Sex: Female

DRUGS (2)
  1. EPCLUSA [Suspect]
     Active Substance: SOFOSBUVIR\VELPATASVIR
     Indication: Hepatitis C
     Dosage: UNK
     Route: 065
  2. EPCLUSA [Suspect]
     Active Substance: SOFOSBUVIR\VELPATASVIR
     Indication: Hepatic cirrhosis

REACTIONS (8)
  - Hepatitis C [Unknown]
  - Hepatic cirrhosis [Fatal]
  - Hepatic encephalopathy [Unknown]
  - Hepatic encephalopathy [Unknown]
  - Ascites [Unknown]
  - Pleural effusion [Unknown]
  - Drug resistance mutation [Unknown]
  - Drug ineffective [Unknown]
